FAERS Safety Report 4967778-X (Version None)
Quarter: 2006Q2

REPORT INFORMATION
  Report Type: 
  Country: None (occurrence: None)
  Receive Date: 20060410
  Receipt Date: 20050218
  Transmission Date: 20061013
  Serious: Yes (Hospitalization, Other)
  Sender: FDA-Public Use
  Company Number: US-MERCK-0502USA02946

PATIENT
  Age: 70 Year
  Sex: Female
  Weight: 61 kg

DRUGS (3)
  1. VIOXX [Suspect]
     Indication: PAIN
     Route: 048
     Dates: start: 20000619, end: 20030128
  2. VIOXX [Suspect]
     Route: 048
     Dates: start: 20030128, end: 20041104
  3. VIOXX [Suspect]
     Route: 048

REACTIONS (48)
  - ACCIDENTAL OVERDOSE [None]
  - ALOPECIA [None]
  - ANGINA PECTORIS [None]
  - AORTIC ARTERIOSCLEROSIS [None]
  - AORTIC VALVE STENOSIS [None]
  - ATRIOVENTRICULAR BLOCK FIRST DEGREE [None]
  - BALANCE DISORDER [None]
  - BUNDLE BRANCH BLOCK LEFT [None]
  - CARDIAC FAILURE CONGESTIVE [None]
  - CARDIOMYOPATHY [None]
  - CEREBROVASCULAR ACCIDENT [None]
  - CHEST PAIN [None]
  - COLITIS [None]
  - CORONARY ARTERY DISEASE [None]
  - CORONARY ARTERY STENOSIS [None]
  - DEEP VEIN THROMBOSIS [None]
  - DEPRESSION [None]
  - DIASTOLIC DYSFUNCTION [None]
  - DIZZINESS [None]
  - DUPUYTREN'S CONTRACTURE [None]
  - DYSPEPSIA [None]
  - EJECTION FRACTION DECREASED [None]
  - FATIGUE [None]
  - GAIT DISTURBANCE [None]
  - GOITRE [None]
  - HEADACHE [None]
  - HOT FLUSH [None]
  - HYPERKALAEMIA [None]
  - HYPOKINESIA [None]
  - INJURY [None]
  - LACUNAR INFARCTION [None]
  - LOSS OF PROPRIOCEPTION [None]
  - MACROCYTOSIS [None]
  - MALAISE [None]
  - MITRAL VALVE INCOMPETENCE [None]
  - MUSCULOSKELETAL CHEST PAIN [None]
  - NECK PAIN [None]
  - OEDEMA PERIPHERAL [None]
  - ORTHOSTATIC HYPOTENSION [None]
  - OSTEOPOROSIS [None]
  - SICK SINUS SYNDROME [None]
  - SYNCOPE [None]
  - THROMBOSIS [None]
  - TINNITUS [None]
  - TRICUSPID VALVE INCOMPETENCE [None]
  - VENTRICULAR EXTRASYSTOLES [None]
  - VENTRICULAR HYPERTROPHY [None]
  - VITILIGO [None]
